FAERS Safety Report 10472960 (Version 3)
Quarter: 2015Q4

REPORT INFORMATION
  Report Type: Spontaneous
  Country: US (occurrence: US)
  Receive Date: 20140924
  Receipt Date: 20151215
  Transmission Date: 20160304
  Serious: Yes (Congenital Anomaly)
  Sender: FDA-Public Use
  Company Number: US-PFIZER INC-9507757

PATIENT
  Sex: Male
  Weight: 1.3 kg

DRUGS (12)
  1. DIFLUCAN [Suspect]
     Active Substance: FLUCONAZOLE
     Dosage: 800 MG, DAILY
     Route: 064
     Dates: start: 199501, end: 199502
  2. ZOFRAN [Concomitant]
     Active Substance: ONDANSETRON HYDROCHLORIDE
     Indication: NAUSEA
     Dosage: 10 MG, EVERY 4 HOURS, AS NEEDED
     Route: 064
  3. ROXANOL [Concomitant]
     Active Substance: MORPHINE SULFATE
     Route: 064
     Dates: start: 19950301, end: 19950412
  4. DIFLUCAN [Suspect]
     Active Substance: FLUCONAZOLE
     Indication: MENINGITIS COCCIDIOIDES
     Dosage: 400 MG, DAILY
     Route: 064
     Dates: start: 199312, end: 199501
  5. COMPAZINE [Concomitant]
     Active Substance: PROCHLORPERAZINE MALEATE
     Indication: NAUSEA
     Dosage: 5-10 MG AS NEEDED
     Route: 064
  6. IBUPROFEN. [Concomitant]
     Active Substance: IBUPROFEN
     Dosage: 600 MG, UNK
     Route: 064
  7. AMPHOTERICIN B. [Concomitant]
     Active Substance: AMPHOTERICIN B
     Indication: MENINGITIS COCCIDIOIDES
     Dosage: 50 MG, 3X/WEEKL
     Route: 064
     Dates: start: 199502, end: 199505
  8. ACETAMINOPHEN. [Concomitant]
     Active Substance: ACETAMINOPHEN
     Dosage: 1 G, UNK
     Route: 064
  9. PAXIL [Concomitant]
     Active Substance: PAROXETINE HYDROCHLORIDE
     Dosage: 10 MG, DAILY
     Route: 064
  10. DIFLUCAN [Suspect]
     Active Substance: FLUCONAZOLE
     Dosage: 1200 MG, DAILY
     Route: 064
     Dates: start: 199505
  11. COLACE [Concomitant]
     Active Substance: DOCUSATE SODIUM
     Route: 064
  12. TRAZODONE [Concomitant]
     Active Substance: TRAZODONE HYDROCHLORIDE
     Dosage: 50 MG, DAILY
     Route: 064

REACTIONS (10)
  - Exophthalmos [Not Recovered/Not Resolved]
  - Craniosynostosis [Not Recovered/Not Resolved]
  - Radioulnar synostosis [Not Recovered/Not Resolved]
  - Maternal exposure during pregnancy [Not Recovered/Not Resolved]
  - Congenital hand malformation [Not Recovered/Not Resolved]
  - Ear malformation [Not Recovered/Not Resolved]
  - Delayed fontanelle closure [Not Recovered/Not Resolved]
  - Congenital foot malformation [Not Recovered/Not Resolved]
  - Congenital nose malformation [Not Recovered/Not Resolved]
  - Brachycephaly [Not Recovered/Not Resolved]
